FAERS Safety Report 9698957 (Version 8)
Quarter: 2014Q1

REPORT INFORMATION
  Report Type: Spontaneous
  Country: IT (occurrence: IT)
  Receive Date: 20131120
  Receipt Date: 20140121
  Transmission Date: 20141002
  Serious: Yes (Hospitalization, Other)
  Sender: FDA-Public Use
  Company Number: IT-PFIZER INC-2013331089

PATIENT
  Age: 51 Year
  Sex: Male

DRUGS (2)
  1. ALPRAZOLAM [Suspect]
     Dosage: 20 DF, UNK
     Route: 048
     Dates: start: 20130930, end: 20130930
  2. VENLAFAXINE HCL [Suspect]
     Dosage: 20 DF, UNK
     Dates: start: 20130930, end: 20130930

REACTIONS (4)
  - Overdose [Recovered/Resolved]
  - Intentional self-injury [Recovered/Resolved]
  - Sopor [Recovered/Resolved]
  - Drug abuse [Unknown]
